FAERS Safety Report 7429999-6 (Version None)
Quarter: 2011Q2

REPORT INFORMATION
  Report Type: 
  Country: None (occurrence: None)
  Receive Date: 20110419
  Receipt Date: 20110419
  Transmission Date: 20111010
  Serious: No
  Sender: FDA-Public Use
  Company Number: None

PATIENT
  Age: 8 Year
  Sex: Female
  Weight: 29.0302 kg

DRUGS (2)
  1. BEPREVE [Suspect]
     Indication: OCULAR SURFACE DISEASE
     Dosage: 1 DROP PER EYE TWICE DAILY OPHTHALMIC ONE DOSE
     Route: 047
     Dates: start: 20110418, end: 20110418
  2. BEPREVE [Suspect]
     Indication: CONJUNCTIVITIS ALLERGIC
     Dosage: 1 DROP PER EYE TWICE DAILY OPHTHALMIC ONE DOSE
     Route: 047
     Dates: start: 20110418, end: 20110418

REACTIONS (1)
  - DYSGEUSIA [None]
